FAERS Safety Report 7207169-4 (Version None)
Quarter: 2011Q1

REPORT INFORMATION
  Report Type: 
  Country: None (occurrence: None)
  Receive Date: 20110103
  Receipt Date: 20101223
  Transmission Date: 20110831
  Serious: Yes (Hospitalization, Other)
  Sender: FDA-Public Use
  Company Number: CA-ROCHE-742090

PATIENT
  Sex: Female
  Weight: 58 kg

DRUGS (4)
  1. OMEPRAZOLE [Concomitant]
  2. ETOPOSIDE [Concomitant]
     Route: 048
     Dates: start: 20101101
  3. BEVACIZUMAB [Suspect]
     Indication: GLIOBLASTOMA
     Route: 042
     Dates: start: 20101022
  4. VALPROIC ACID [Concomitant]

REACTIONS (3)
  - FATIGUE [None]
  - NECK MASS [None]
  - NEOPLASM MALIGNANT [None]
